FAERS Safety Report 7416804-7 (Version None)
Quarter: 2011Q1

REPORT INFORMATION
  Report Type: 
  Country: None (occurrence: None)
  Receive Date: 20110302
  Receipt Date: 20101103
  Transmission Date: 20110831
  Serious: No
  Sender: FDA-Public Use
  Company Number: 019611

PATIENT
  Sex: Female
  Weight: 76.2043 kg

DRUGS (13)
  1. ROBINUL [Concomitant]
  2. ZANTAC [Concomitant]
  3. EVISTA [Concomitant]
  4. PENTASA [Concomitant]
  5. LEVSIN [Concomitant]
  6. IMURAN [Concomitant]
  7. NEXIUM [Concomitant]
  8. ZOFRAN [Concomitant]
  9. LACRISERT [Concomitant]
  10. LUNESTA [Concomitant]
  11. CIMZIA [Suspect]
     Indication: CROHN'S DISEASE
     Dosage: 400 MG 1X/2 WEEKS SUBCUTANEOUS
     Route: 058
     Dates: start: 20100909
  12. FOSAMAX [Concomitant]
  13. IMITREX [Concomitant]

REACTIONS (8)
  - LYMPHADENOPATHY [None]
  - SINUSITIS [None]
  - ABDOMINAL PAIN [None]
  - DIARRHOEA [None]
  - FATIGUE [None]
  - FLATULENCE [None]
  - CONDITION AGGRAVATED [None]
  - PAIN [None]
